FAERS Safety Report 17038662 (Version 1)
Quarter: 2019Q4

REPORT INFORMATION
  Report Type: Spontaneous
  Country: CZ (occurrence: CZ)
  Receive Date: 20191115
  Receipt Date: 20191115
  Transmission Date: 20200122
  Serious: Yes (Hospitalization)
  Sender: FDA-Public Use
  Company Number: NVSC2019CZ033841

PATIENT
  Age: 67 Year
  Sex: Female
  Weight: 78 kg

DRUGS (8)
  1. GUAIPHENESIN [Concomitant]
     Active Substance: GUAIFENESIN
     Indication: BACK PAIN
     Dosage: UNKNOWN
     Route: 065
  2. ZOLPIDEM [Suspect]
     Active Substance: ZOLPIDEM TARTRATE
     Indication: INSOMNIA
     Dosage: 10 MG, QD
     Route: 065
  3. CAFEINE [Concomitant]
     Active Substance: CAFFEINE
     Indication: BACK PAIN
     Dosage: UNKNOWN
     Route: 065
  4. ZOLPIDEM [Suspect]
     Active Substance: ZOLPIDEM TARTRATE
     Dosage: 20 MG, QD
     Route: 065
  5. ZOLPIDEM [Suspect]
     Active Substance: ZOLPIDEM TARTRATE
     Dosage: 30 MG, QD
     Route: 065
  6. INSULIN [Concomitant]
     Active Substance: INSULIN NOS
     Indication: DIABETES MELLITUS
     Dosage: UNKNOWN
     Route: 065
  7. PARACETAMOL [Concomitant]
     Active Substance: ACETAMINOPHEN
     Indication: BACK PAIN
     Dosage: UNKNOWN
     Route: 065
  8. METFORMIN [Concomitant]
     Active Substance: METFORMIN HYDROCHLORIDE
     Indication: DIABETES MELLITUS
     Dosage: UNKNOWN
     Route: 065

REACTIONS (9)
  - Terminal insomnia [Recovered/Resolved]
  - Anxiety [Unknown]
  - Anhedonia [Unknown]
  - Suicidal ideation [Recovering/Resolving]
  - Psychomotor retardation [Recovered/Resolved]
  - Decreased appetite [Unknown]
  - Intentional product use issue [Unknown]
  - Depression [Recovering/Resolving]
  - Abulia [Unknown]
